FAERS Safety Report 13116253 (Version 3)
Quarter: 2017Q1

REPORT INFORMATION
  Report Type: Report from Study
  Country: NL (occurrence: NL)
  Receive Date: 20170116
  Receipt Date: 20170224
  Transmission Date: 20170428
  Serious: Yes (Death, Hospitalization, Other)
  Sender: FDA-Public Use
  Company Number: NL-INCYTE CORPORATION-2016IN007627

PATIENT
  Age: 68 Year
  Sex: Male
  Weight: 88 kg

DRUGS (1)
  1. JAKAVI [Suspect]
     Active Substance: RUXOLITINIB
     Indication: PRIMARY MYELOFIBROSIS
     Dosage: 20 MG, BID
     Route: 048
     Dates: start: 20120830, end: 20161210

REACTIONS (10)
  - BK virus infection [Unknown]
  - Multiple organ dysfunction syndrome [Fatal]
  - Rhinovirus infection [Unknown]
  - Somnolence [Recovering/Resolving]
  - Sepsis [Fatal]
  - Pneumonia [Fatal]
  - Pneumonia pneumococcal [Fatal]
  - Pyrexia [Recovered/Resolved]
  - Staphylococcal infection [Fatal]
  - Staphylococcal sepsis [Unknown]

NARRATIVE: CASE EVENT DATE: 20151212
